FAERS Safety Report 7245468-0 (Version None)
Quarter: 2011Q1

REPORT INFORMATION
  Report Type: 
  Country: None (occurrence: None)
  Receive Date: 20110126
  Receipt Date: 20101118
  Transmission Date: 20110831
  Serious: Yes (Hospitalization, Other)
  Sender: FDA-Public Use
  Company Number: PL-JNJFOC-20110105686

PATIENT
  Sex: Female
  Weight: 54.7 kg

DRUGS (9)
  1. GOLIMUMAB [Suspect]
     Indication: PSORIATIC ARTHROPATHY
     Route: 058
  2. ENCORTON [Concomitant]
     Route: 048
  3. GOLIMUMAB [Suspect]
     Route: 058
  4. ACIDUM FOLICUM [Concomitant]
     Route: 048
  5. KALIPOZ [Concomitant]
     Route: 048
  6. POLPRAZOL [Concomitant]
     Route: 048
  7. NAKLOFEN DUO [Concomitant]
     Route: 048
  8. METHOTREXATE [Concomitant]
     Route: 048
  9. PARACETAMOL [Concomitant]
     Route: 048

REACTIONS (1)
  - BREAST CANCER [None]
